FAERS Safety Report 7217939-4 (Version None)
Quarter: 2011Q1

REPORT INFORMATION
  Report Type: 
  Country: None (occurrence: None)
  Receive Date: 20110110
  Receipt Date: 20110104
  Transmission Date: 20110831
  Serious: Yes (Other)
  Sender: FDA-Public Use
  Company Number: A0832505A

PATIENT
  Age: 59 Year
  Sex: Female

DRUGS (12)
  1. LOPRESSOR [Concomitant]
  2. LASIX [Concomitant]
  3. ADVAIR [Suspect]
     Indication: ASTHMA
     Dosage: 1PUFF TWICE PER DAY
     Route: 055
     Dates: start: 20050101
  4. PAXIL [Suspect]
     Indication: DEPRESSION
     Route: 048
  5. VITAMIN D [Concomitant]
  6. PRAVACHOL [Concomitant]
  7. KLOR-CON [Concomitant]
  8. DAYPRO [Concomitant]
  9. DYAZIDE [Suspect]
     Route: 048
  10. MULTI-VITAMIN [Concomitant]
  11. COQ10 [Concomitant]
  12. XANAX [Concomitant]

REACTIONS (3)
  - COMA [None]
  - ULCER HAEMORRHAGE [None]
  - HIATUS HERNIA [None]
